FAERS Safety Report 4959673-7 (Version None)
Quarter: 2006Q1

REPORT INFORMATION
  Report Type: 
  Country: None (occurrence: None)
  Receive Date: 20060331
  Receipt Date: 20060309
  Transmission Date: 20060701
  Serious: Yes (Death, Life-Threatening, Other)
  Sender: FDA-Public Use
  Company Number: PHBS2006JP03637

PATIENT
  Sex: Male

DRUGS (1)
  1. VOLTAREN [Suspect]
     Indication: PAIN
     Dosage: 150 MG/DAY
     Route: 048
     Dates: start: 20060101

REACTIONS (15)
  - ANAEMIA [None]
  - ATRIOVENTRICULAR BLOCK COMPLETE [None]
  - C-REACTIVE PROTEIN INCREASED [None]
  - CARDIO-RESPIRATORY ARREST [None]
  - DEPRESSED LEVEL OF CONSCIOUSNESS [None]
  - ENTEROCOLITIS [None]
  - GASTRIC ULCER HAEMORRHAGE [None]
  - HAEMATOCRIT DECREASED [None]
  - HAEMOGLOBIN DECREASED [None]
  - HYPERKALAEMIA [None]
  - HYPERTENSION [None]
  - INFLAMMATION [None]
  - METABOLIC ACIDOSIS [None]
  - PERIPHERAL CIRCULATORY FAILURE [None]
  - WHITE BLOOD CELL COUNT INCREASED [None]
